FAERS Safety Report 11837689 (Version 1)
Quarter: 2015Q4

REPORT INFORMATION
  Report Type: Spontaneous
  Country: AU (occurrence: AU)
  Receive Date: 20151215
  Receipt Date: 20151215
  Transmission Date: 20160305
  Serious: Yes (Other)
  Sender: FDA-Public Use
  Company Number: AU-BAYER-2015-483620

PATIENT
  Age: 19 Year
  Sex: Male

DRUGS (2)
  1. PRAZIQUANTEL [Suspect]
     Active Substance: PRAZIQUANTEL
     Indication: SCHISTOSOMIASIS
     Dosage: UNK
     Route: 048
  2. PREDNISOLONE. [Concomitant]
     Active Substance: PREDNISOLONE
     Dosage: 50 MG, QD

REACTIONS (1)
  - Hepatitis acute [Unknown]
